FAERS Safety Report 19888296 (Version 1)
Quarter: 2021Q3

REPORT INFORMATION
  Report Type: Spontaneous
  Country: US (occurrence: US)
  Receive Date: 20210928
  Receipt Date: 20210928
  Transmission Date: 20211014
  Serious: No
  Sender: FDA-Public Use
  Company Number: US-CADILA HEALTHCARE LIMITED-US-ZYDUS-069399

PATIENT

DRUGS (6)
  1. RIVASTIGMINE TRANSDERMAL SYSTEM [Suspect]
     Active Substance: RIVASTIGMINE
     Dosage: 4.6 MILLIGRAM, QD
     Route: 062
     Dates: start: 20210909
  2. NUMAQULA VITAMIN AREDS2 [Concomitant]
     Indication: PRODUCT USED FOR UNKNOWN INDICATION
     Dosage: UNK
     Route: 048
  3. RIVASTIGMINE TRANSDERMAL SYSTEM [Suspect]
     Active Substance: RIVASTIGMINE
     Indication: DEMENTIA ALZHEIMER^S TYPE
     Dosage: 4.6 MILLIGRAM, QD
     Route: 062
     Dates: start: 202106, end: 20210824
  4. OLEMSARTAN [Concomitant]
     Indication: PRODUCT USED FOR UNKNOWN INDICATION
     Dosage: UNK
     Route: 048
  5. RIVASTIGMINE TRANSDERMAL SYSTEM [Suspect]
     Active Substance: RIVASTIGMINE
     Dosage: 9.5 MILLIGRAM, QD
     Route: 062
     Dates: start: 20210824, end: 20210825
  6. ROSUVASTATIN CALCIUM. [Concomitant]
     Active Substance: ROSUVASTATIN CALCIUM
     Indication: PRODUCT USED FOR UNKNOWN INDICATION
     Dosage: UNK
     Route: 048

REACTIONS (7)
  - Rash [Not Recovered/Not Resolved]
  - Malaise [Not Recovered/Not Resolved]
  - Pruritus [Not Recovered/Not Resolved]
  - Erythema [Not Recovered/Not Resolved]
  - Vomiting [Recovered/Resolved]
  - Diarrhoea [Recovered/Resolved]
  - Nausea [Not Recovered/Not Resolved]

NARRATIVE: CASE EVENT DATE: 202108
